FAERS Safety Report 9204514 (Version 4)
Quarter: 2014Q4

REPORT INFORMATION
  Report Type: Spontaneous
  Country: JP (occurrence: JP)
  Receive Date: 20130402
  Receipt Date: 20141128
  Transmission Date: 20150529
  Serious: Yes (Death, Life-Threatening, Hospitalization)
  Sender: FDA-Public Use
  Company Number: JP-ROCHE-1209339

PATIENT
  Age: 81 Year
  Sex: Male
  Weight: 50 kg

DRUGS (7)
  1. CARBOPLATIN. [Concomitant]
     Active Substance: CARBOPLATIN
     Indication: LUNG ADENOCARCINOMA RECURRENT
     Route: 041
     Dates: start: 20120228, end: 201210
  2. SEISHOKU [Concomitant]
     Active Substance: SODIUM CHLORIDE
     Route: 041
     Dates: start: 20120228, end: 20130228
  3. GRANISETRON [Concomitant]
     Active Substance: GRANISETRON
     Indication: PROPHYLAXIS OF NAUSEA AND VOMITING
     Route: 042
     Dates: start: 20120228, end: 20130228
  4. ALIMTA [Concomitant]
     Active Substance: PEMETREXED DISODIUM
     Indication: LUNG ADENOCARCINOMA RECURRENT
     Route: 041
     Dates: start: 201210
  5. AVASTIN [Suspect]
     Active Substance: BEVACIZUMAB
     Indication: LUNG ADENOCARCINOMA RECURRENT
     Route: 041
     Dates: start: 20120228, end: 201210
  6. AVASTIN [Suspect]
     Active Substance: BEVACIZUMAB
     Indication: LUNG ADENOCARCINOMA RECURRENT
     Route: 041
     Dates: start: 201210
  7. ALIMTA [Concomitant]
     Active Substance: PEMETREXED DISODIUM
     Indication: LUNG ADENOCARCINOMA RECURRENT
     Dosage: DOSAGE IS UNCERTAIN.
     Route: 041
     Dates: start: 20120228, end: 201210

REACTIONS (2)
  - Aortic dissection [Recovering/Resolving]
  - Non-small cell lung cancer metastatic [Fatal]

NARRATIVE: CASE EVENT DATE: 20130321
